FAERS Safety Report 9503270 (Version 1)
Quarter: 2013Q3

REPORT INFORMATION
  Report Type: Report from Study
  Country: DE (occurrence: DE)
  Receive Date: 20130906
  Receipt Date: 20130906
  Transmission Date: 20140515
  Serious: Yes (Other)
  Sender: FDA-Public Use
  Company Number: DE-SANOFI-AVENTIS-2013SA087249

PATIENT
  Age: 80 Year
  Sex: Male
  Weight: 75 kg

DRUGS (8)
  1. MULTAQ [Suspect]
     Indication: ATRIAL FIBRILLATION
     Route: 065
     Dates: end: 2013
  2. BETA BLOCKING AGENTS [Concomitant]
     Dates: start: 200507
  3. ALL OTHER THERAPEUTIC PRODUCTS [Concomitant]
     Dates: start: 200507
  4. VIT K ANTAGONISTS [Concomitant]
     Dates: start: 20080429
  5. CARMEN [Concomitant]
     Dosage: UNIT CONT:20
  6. METOPROLOL [Concomitant]
     Dosage: UNIT CONT:47.5
  7. PHENPROCOUMON [Concomitant]
  8. TEVETEN [Concomitant]

REACTIONS (1)
  - Atrial fibrillation [Unknown]
